FAERS Safety Report 25726499 (Version 3)
Quarter: 2025Q4

REPORT INFORMATION
  Report Type: Spontaneous
  Country: US (occurrence: US)
  Receive Date: 20250826
  Receipt Date: 20251009
  Transmission Date: 20260117
  Serious: No
  Sender: BAYER HEALTHCARE PHARMACEUTICALS INC.
  Company Number: US-BAYER-2025A111231

PATIENT
  Sex: Female

DRUGS (2)
  1. ESTRADIOL [Suspect]
     Active Substance: ESTRADIOL
     Dosage: 0.05 MG
     Route: 062
     Dates: start: 2025
  2. PROGESTERONE [Concomitant]
     Active Substance: PROGESTERONE

REACTIONS (10)
  - Insomnia [Recovered/Resolved]
  - Hot flush [None]
  - Arthralgia [None]
  - Weight increased [None]
  - Headache [None]
  - Breast discomfort [Recovered/Resolved]
  - Breast tenderness [Recovered/Resolved]
  - Night sweats [None]
  - Drug ineffective [None]
  - Product quality issue [None]

NARRATIVE: CASE EVENT DATE: 20250619
